FAERS Safety Report 4490677-7 (Version None)
Quarter: 2004Q4

REPORT INFORMATION
  Report Type: 
  Country: None (occurrence: None)
  Receive Date: 20041102
  Receipt Date: 20041029
  Transmission Date: 20050328
  Serious: Yes (Hospitalization)
  Sender: FDA-Public Use
  Company Number: US-GLAXOSMITHKLINE-A0531841A

PATIENT
  Age: 47 Year
  Sex: Male

DRUGS (2)
  1. PAXIL [Suspect]
     Indication: GENERALISED ANXIETY DISORDER
     Dosage: 20MG PER DAY
     Route: 048
     Dates: start: 20001101, end: 20041014
  2. ATIVAN [Concomitant]

REACTIONS (15)
  - ALCOHOL USE [None]
  - COMA [None]
  - DELIRIUM [None]
  - DELUSION [None]
  - DRUG WITHDRAWAL SYNDROME [None]
  - HALLUCINATION [None]
  - HYPERPHAGIA [None]
  - INAPPROPRIATE AFFECT [None]
  - INSOMNIA [None]
  - JUDGEMENT IMPAIRED [None]
  - LOGORRHOEA [None]
  - OBSESSIVE-COMPULSIVE DISORDER [None]
  - OVERDOSE [None]
  - OVERWORK [None]
  - POLYDIPSIA [None]
